FAERS Safety Report 13094891 (Version 1)
Quarter: 2017Q1

REPORT INFORMATION
  Report Type: Spontaneous
  Country: US (occurrence: US)
  Receive Date: 20170106
  Receipt Date: 20170106
  Transmission Date: 20170428
  Serious: No
  Sender: FDA-Public Use
  Company Number: US-EPIC PHARMA LLC-2016EPC00020

PATIENT
  Age: 69 Year
  Sex: Female

DRUGS (2)
  1. OXYCODONE HYDROCHLORIDE. [Suspect]
     Active Substance: OXYCODONE HYDROCHLORIDE
     Dosage: 5 MG, 2X/DAY
     Route: 048
  2. LAMOTRIGINE (TARO) [Suspect]
     Active Substance: LAMOTRIGINE
     Indication: PAIN
     Dosage: UNK UNK, UP TO 2X/DAY
     Dates: start: 20160928, end: 2016

REACTIONS (3)
  - Wrong drug administered [Recovered/Resolved]
  - Drug ineffective [Recovered/Resolved]
  - Drug dispensing error [Recovered/Resolved]

NARRATIVE: CASE EVENT DATE: 2016
